FAERS Safety Report 10179527 (Version 1)
Quarter: 2014Q2

REPORT INFORMATION
  Report Type: Spontaneous
  Country: US (occurrence: None)
  Receive Date: 20140416
  Receipt Date: 20140416
  Transmission Date: 20141212
  Serious: Yes (Hospitalization, Other)
  Sender: FDA-Public Use
  Company Number: 163-POMAL-13100823

PATIENT
  Age: 76 Year
  Sex: Male
  Weight: 109 kg

DRUGS (12)
  1. POMALYST [Suspect]
     Indication: PLASMA CELL MYELOMA
     Route: 048
     Dates: start: 20130429, end: 201305
  2. MELPHALAN(MELPHALAN) [Concomitant]
  3. PREDNISONE(PREDNISONE)(TABLETS) [Concomitant]
  4. ACYCLOVIR(ACICLOVIR)(TABLETS) [Concomitant]
  5. ASPIRIN(ACETYSALICYLIC ACID)(ENTERIC-COATED TABLET) [Concomitant]
  6. BENICAR(OLMESARTAN MEDOXIMIL)(TABLETS) [Concomitant]
  7. HYDROCHLOROTHIAZIDE(HYDROCHLOROTHIAZIDE)(TABLETS) [Concomitant]
  8. LACTULOSE(LACTULOSE)(SOLUTION) [Concomitant]
  9. OMEPRAZOLE(OMEPRAZOLE)(CAPSULES) [Concomitant]
  10. PERCOCET(OXYCOCET)(TABLETS) [Concomitant]
  11. PROCHLORPERAZINE(PROCHLORPERAZINE)(TABLETS) [Concomitant]
  12. SIMVASTATIN(SIMVASTIN)(TABLETS) [Concomitant]

REACTIONS (4)
  - Pneumonia [None]
  - Plasma cell myeloma [None]
  - Pain in extremity [None]
  - Dyspnoea [None]
